FAERS Safety Report 12290728 (Version 2)
Quarter: 2016Q2

REPORT INFORMATION
  Report Type: Spontaneous
  Country: US (occurrence: US)
  Receive Date: 20160421
  Receipt Date: 20160427
  Transmission Date: 20160815
  Serious: No
  Sender: FDA-Public Use
  Company Number: US-PFIZER INC-2016188207

PATIENT
  Age: 69 Year
  Sex: Male
  Weight: 86 kg

DRUGS (6)
  1. ADVIL PM [Suspect]
     Active Substance: DIPHENHYDRAMINE CITRATE\IBUPROFEN
     Indication: PAIN
     Dosage: UNK
     Dates: start: 201604
  2. ADVIL PM [Suspect]
     Active Substance: DIPHENHYDRAMINE CITRATE\IBUPROFEN
     Indication: SLEEP DISORDER
     Dosage: 400 MG, SINGLE
     Route: 048
     Dates: start: 20160330, end: 20160330
  3. ADVIL PM [Suspect]
     Active Substance: DIPHENHYDRAMINE CITRATE\IBUPROFEN
     Indication: PAIN
  4. STOOL SOFTENER [Concomitant]
     Active Substance: DOCUSATE CALCIUM
     Indication: PROPHYLAXIS
     Dosage: 4 CAPSULES, DAILY
     Route: 048
  5. GLUCOSAMINE [Concomitant]
     Active Substance: GLUCOSAMINE
     Indication: ARTHRITIS
     Dosage: 3000 MG, 1X/DAY
     Route: 048
  6. RESTASIS [Concomitant]
     Active Substance: CYCLOSPORINE
     Indication: CATARACT
     Dosage: 1 DF, DAILY, IN EACH EYE
     Dates: start: 2015

REACTIONS (3)
  - Drug ineffective [Recovered/Resolved]
  - Poor quality sleep [Recovered/Resolved]
  - Hunger [Recovered/Resolved]

NARRATIVE: CASE EVENT DATE: 20160330
